FAERS Safety Report 7375525-X (Version None)
Quarter: 2011Q1

REPORT INFORMATION
  Report Type: 
  Country: None (occurrence: None)
  Receive Date: 20110325
  Receipt Date: 20110311
  Transmission Date: 20110831
  Serious: Yes (Hospitalization)
  Sender: FDA-Public Use
  Company Number: FR-JNJFOC-20110306365

PATIENT
  Age: 36 Year
  Sex: Female

DRUGS (8)
  1. REMICADE [Suspect]
     Route: 042
  2. REMICADE [Suspect]
     Route: 042
  3. REMICADE [Suspect]
     Route: 042
  4. REMICADE [Suspect]
     Route: 042
  5. REMICADE [Suspect]
     Indication: RHEUMATOID ARTHRITIS
     Route: 042
  6. REMICADE [Suspect]
     Route: 042
  7. REMICADE [Suspect]
     Route: 042
  8. REMICADE [Suspect]
     Route: 042

REACTIONS (9)
  - MALAISE [None]
  - HYPERTENSION [None]
  - DYSPNOEA [None]
  - ERYTHEMA [None]
  - CHEST DISCOMFORT [None]
  - INFUSION RELATED REACTION [None]
  - HOT FLUSH [None]
  - NAUSEA [None]
  - TACHYCARDIA [None]
